FAERS Safety Report 23318640 (Version 1)
Quarter: 2023Q4

REPORT INFORMATION
  Report Type: Spontaneous
  Country: JP (occurrence: JP)
  Receive Date: 20231220
  Receipt Date: 20231220
  Transmission Date: 20240109
  Serious: Yes (Hospitalization)
  Sender: FDA-Public Use
  Company Number: JP-CHUGAI-2023026569

PATIENT
  Sex: Female
  Weight: 43 kg

DRUGS (7)
  1. ACTEMRA [Suspect]
     Active Substance: TOCILIZUMAB
     Indication: Giant cell arteritis
     Route: 058
     Dates: start: 20200916, end: 20210609
  2. VONOPRAZAN FUMARATE [Concomitant]
     Active Substance: VONOPRAZAN FUMARATE
     Dosage: 20 MG, ONCE A DAY, AFTER BREAKFAST
  3. ASPIRIN [Concomitant]
     Active Substance: ASPIRIN
     Dosage: 100 MG, ONCE A DAY, AFTER BREAKFAST
  4. ALENDRONATE SODIUM [Concomitant]
     Active Substance: ALENDRONATE SODIUM
     Dosage: 35 MG, ONCE A WEEK, ON AWAKENING
  5. SULFAMETHOXAZOLE\TRIMETHOPRIM [Concomitant]
     Active Substance: SULFAMETHOXAZOLE\TRIMETHOPRIM
     Dosage: ONCE A DAY, ORAL ADMINISTRATION AFTER BREAKFAST ON MONDAY, WEDNESDAY, AND FRIDAY
  6. LIPITOR [Concomitant]
     Active Substance: ATORVASTATIN CALCIUM
     Dosage: 5 MG, ONCE A DAY, AFTER DINNER
  7. HERBALS [Concomitant]
     Active Substance: HERBALS
     Dosage: 2.5 G, THREE TIMES A DAY, ORAL ADMINISTRATION BEFORE EACH MEAL, IN THE PRESENCE OF CHILLS

REACTIONS (2)
  - Breast cancer [Recovered/Resolved]
  - Off label use [Unknown]

NARRATIVE: CASE EVENT DATE: 20210101
